FAERS Safety Report 7051631-4 (Version None)
Quarter: 2010Q4

REPORT INFORMATION
  Report Type: 
  Country: None (occurrence: None)
  Receive Date: 20101018
  Receipt Date: 20101018
  Transmission Date: 20110411
  Serious: Yes (Other)
  Sender: FDA-Public Use
  Company Number: None

PATIENT
  Age: 64 Year
  Sex: Female

DRUGS (1)
  1. OXYBUTYNIN [Suspect]
     Indication: HYPERTONIC BLADDER
     Dosage: 1 TABLET DAILY PO
     Route: 048
     Dates: start: 20100925, end: 20101015

REACTIONS (2)
  - HYPERTONIC BLADDER [None]
  - PRODUCT SUBSTITUTION ISSUE [None]
